FAERS Safety Report 10486080 (Version 1)
Quarter: 2014Q3

REPORT INFORMATION
  Report Type: Spontaneous
  Country: US (occurrence: None)
  Receive Date: 20140930
  Receipt Date: 20140930
  Transmission Date: 20150326
  Serious: Yes (Other)
  Sender: FDA-Public Use
  Company Number: None

PATIENT
  Age: 58 Year
  Sex: Female
  Weight: 70.31 kg

DRUGS (2)
  1. SULINDAC. [Suspect]
     Active Substance: SULINDAC
     Indication: PAIN
     Dosage: 1TABLET TWICE DAILY TAKEN BY MOUTH
     Route: 048
     Dates: start: 20140514, end: 20140928
  2. SULINDAC. [Suspect]
     Active Substance: SULINDAC
     Indication: INSOMNIA
     Dosage: 1TABLET TWICE DAILY TAKEN BY MOUTH
     Route: 048
     Dates: start: 20140514, end: 20140928

REACTIONS (4)
  - Asthenia [None]
  - Vomiting [None]
  - Malaise [None]
  - Diarrhoea [None]

NARRATIVE: CASE EVENT DATE: 20140928
